FAERS Safety Report 16970822 (Version 1)
Quarter: 2019Q4

REPORT INFORMATION
  Report Type: Spontaneous
  Country: JP (occurrence: JP)
  Receive Date: 20191029
  Receipt Date: 20191029
  Transmission Date: 20200122
  Serious: Yes (Hospitalization)
  Sender: FDA-Public Use
  Company Number: JP-DSJP-DSJ-2019-140799

PATIENT

DRUGS (2)
  1. LIXIANA TABLETS 30MG [Suspect]
     Active Substance: EDOXABAN TOSYLATE
     Dosage: 30 MG/DAY
     Route: 048
  2. LIXIANA TABLETS 30MG [Suspect]
     Active Substance: EDOXABAN TOSYLATE
     Indication: ATRIAL FIBRILLATION
     Dosage: 30 MG/DAY
     Route: 048

REACTIONS (2)
  - Cystitis haemorrhagic [Unknown]
  - Arterial occlusive disease [Recovered/Resolved with Sequelae]
